FAERS Safety Report 7589365-X (Version None)
Quarter: 2011Q2

REPORT INFORMATION
  Report Type: 
  Country: None (occurrence: None)
  Receive Date: 20110603
  Receipt Date: 20110209
  Transmission Date: 20111010
  Serious: No
  Sender: FDA-Public Use
  Company Number: 2011SP006318

PATIENT
  Age: 76 Year
  Sex: Female

DRUGS (10)
  1. LEVOTHYROXINE [Concomitant]
  2. ISOSORBIDE DINITRATE [Concomitant]
  3. BENICAR [Concomitant]
  4. COREG [Concomitant]
  5. SEROQUEL [Concomitant]
  6. LITHIUM [Concomitant]
  7. SAPHRIS [Suspect]
     Indication: BIPOLAR DISORDER
     Dosage: 5 MG;QAM ; 10 MG;QPM
     Dates: start: 20100616
  8. SAPHRIS [Suspect]
     Indication: BIPOLAR DISORDER
     Dosage: 5 MG;QAM ; 10 MG;QPM
     Dates: start: 20100616
  9. XANAX [Concomitant]
  10. CLONIDINE [Concomitant]

REACTIONS (1)
  - TOOTH DISCOLOURATION [None]
